FAERS Safety Report 7226826-7 (Version None)
Quarter: 2011Q1

REPORT INFORMATION
  Report Type: 
  Country: None (occurrence: None)
  Receive Date: 20110114
  Receipt Date: 20110105
  Transmission Date: 20110831
  Serious: Yes (Hospitalization)
  Sender: FDA-Public Use
  Company Number: IT-SANOFI-AVENTIS-2009SA007982

PATIENT
  Age: 66 Year
  Sex: Male
  Weight: 100 kg

DRUGS (11)
  1. DOCETAXEL [Suspect]
     Indication: NON-SMALL CELL LUNG CANCER
     Route: 042
     Dates: start: 20091123, end: 20091123
  2. LANSOPRAZOLE [Concomitant]
     Dates: start: 20090827
  3. MEDROL [Concomitant]
     Dates: start: 20090827
  4. AFLIBERCEPT [Suspect]
     Indication: NON-SMALL CELL LUNG CANCER
     Route: 042
     Dates: start: 20091123, end: 20091123
  5. GRANULOKINE [Concomitant]
     Dates: start: 20091204, end: 20091204
  6. LIMICAN [Concomitant]
     Dates: start: 20091029
  7. AFLIBERCEPT [Suspect]
     Route: 042
     Dates: start: 20090921, end: 20090921
  8. DOCETAXEL [Suspect]
     Route: 042
     Dates: start: 20090921, end: 20090921
  9. TAVOR [Concomitant]
     Dates: start: 20080121
  10. ALIFLUS DISKUS /01434201/ [Concomitant]
     Dates: start: 20090827
  11. SPIRIVA [Concomitant]
     Dates: start: 20090827

REACTIONS (1)
  - CHOLECYSTITIS ACUTE [None]
